FAERS Safety Report 14283381 (Version 2)
Quarter: 2018Q1

REPORT INFORMATION
  Report Type: Report from Study
  Country: None (occurrence: US)
  Receive Date: 20171213
  Receipt Date: 20180328
  Transmission Date: 20180508
  Serious: Yes (Hospitalization)
  Sender: FDA-Public Use
  Company Number: US-ABBVIE-17P-163-2192672-00

PATIENT
  Age: 12 Year
  Sex: Female
  Weight: 31.4 kg

DRUGS (15)
  1. CALCIUM/VITAMIN D COMBO [Concomitant]
     Dosage: VITAMIN D
     Route: 048
  2. ORAPRED [Concomitant]
     Active Substance: PREDNISOLONE SODIUM PHOSPHATE
     Indication: CROHN^S DISEASE
     Route: 048
     Dates: start: 20161206, end: 20161215
  3. PRILOSEC [Concomitant]
     Active Substance: OMEPRAZOLE MAGNESIUM
     Indication: GASTRIC DISORDER
     Route: 048
     Dates: start: 20170119
  4. HUMIRA [Suspect]
     Active Substance: ADALIMUMAB
     Indication: CROHN^S DISEASE
     Dosage: FREQUENCY CHANGE
     Route: 058
     Dates: start: 20160613, end: 20161215
  5. HUMIRA [Suspect]
     Active Substance: ADALIMUMAB
     Route: 058
     Dates: start: 20161215, end: 20171016
  6. PROBIOTICS [Concomitant]
     Active Substance: PROBIOTICS NOS
     Indication: PROPHYLAXIS AGAINST DIARRHOEA
     Route: 048
     Dates: start: 20161103
  7. PREVACID [Concomitant]
     Active Substance: LANSOPRAZOLE
     Indication: PROPHYLAXIS
     Route: 048
     Dates: start: 20161206, end: 20161215
  8. ZOFRAN [Concomitant]
     Active Substance: ONDANSETRON HYDROCHLORIDE
     Indication: NAUSEA
     Route: 048
     Dates: start: 20170119
  9. CALCIUM/VITAMIN D COMBO [Concomitant]
     Indication: VITAMIN SUPPLEMENTATION
     Dosage: CALCIUM
     Route: 048
     Dates: start: 20151230
  10. FLAGYL [Concomitant]
     Active Substance: METRONIDAZOLE\METRONIDAZOLE HYDROCHLORIDE
     Route: 048
     Dates: start: 20170526, end: 20170621
  11. 6-MERCAPTOPURINE [Suspect]
     Active Substance: MERCAPTOPURINE
     Indication: CROHN^S DISEASE
     Route: 048
     Dates: start: 20170727, end: 20170727
  12. MULTIVITAMIN WITH IRON [Concomitant]
     Active Substance: IRON\VITAMINS
     Indication: VITAMIN SUPPLEMENTATION
     Route: 048
     Dates: start: 20151230
  13. K PHOS NEUTRAL [Concomitant]
     Active Substance: POTASSIUM PHOSPHATE, MONOBASIC\SODIUM PHOSPHATE, DIBASIC, ANHYDROUS\SODIUM PHOSPHATE, MONOBASIC, MONOHYDRATE
     Indication: MALNUTRITION
     Dosage: 1 PACKER
     Route: 048
     Dates: start: 20161206, end: 20161216
  14. FLAGYL [Concomitant]
     Active Substance: METRONIDAZOLE\METRONIDAZOLE HYDROCHLORIDE
     Indication: CROHN^S DISEASE
     Route: 048
     Dates: start: 20161103, end: 20161215
  15. ZOFRAN [Concomitant]
     Active Substance: ONDANSETRON HYDROCHLORIDE
     Indication: VOMITING

REACTIONS (4)
  - Malnutrition [Not Recovered/Not Resolved]
  - Clostridium difficile infection [Recovered/Resolved]
  - Anaemia of chronic disease [Not Recovered/Not Resolved]
  - Adjustment disorder with mixed anxiety and depressed mood [Recovered/Resolved]

NARRATIVE: CASE EVENT DATE: 20170923
